FAERS Safety Report 6617822-9 (Version None)
Quarter: 2010Q1

REPORT INFORMATION
  Report Type: 
  Country: None (occurrence: None)
  Receive Date: 20100308
  Receipt Date: 20100303
  Transmission Date: 20100710
  Serious: Yes (Death)
  Sender: FDA-Public Use
  Company Number: PHHY2010CA11895

PATIENT
  Sex: Female

DRUGS (9)
  1. ACLASTA [Suspect]
     Indication: OSTEOPOROSIS
     Dosage: UNK
     Dates: start: 20090430
  2. ADVAIR DISKUS 100/50 [Concomitant]
  3. ASPIRIN [Concomitant]
  4. CARBOCAL D [Concomitant]
  5. COVERSYL PLUS [Concomitant]
  6. CRESTOR [Concomitant]
  7. NEXIUM [Concomitant]
  8. PAXIL [Concomitant]
  9. SERAX [Concomitant]

REACTIONS (1)
  - LUNG NEOPLASM MALIGNANT [None]
